FAERS Safety Report 6926404-0 (Version None)
Quarter: 2010Q3

REPORT INFORMATION
  Report Type: 
  Country: None (occurrence: None)
  Receive Date: 20100816
  Receipt Date: 20100816
  Transmission Date: 20110219
  Serious: Yes (Hospitalization)
  Sender: FDA-Public Use
  Company Number: None

PATIENT
  Sex: Female
  Weight: 8.08 kg

DRUGS (4)
  1. DOXORUBICIN HYDROCHLORIDE [Suspect]
     Dosage: 35.2 MG
  2. G-CSF (FILGRASTIM, AMGEN) [Suspect]
     Dosage: 920 MCG
  3. IFOSFAMIDE [Suspect]
     Dosage: 11.385 G
  4. MESNA [Suspect]
     Dosage: 9108 MG

REACTIONS (9)
  - DIARRHOEA [None]
  - FANCONI SYNDROME [None]
  - HYPOPHAGIA [None]
  - HYPOTENSION [None]
  - IRRITABILITY [None]
  - LETHARGY [None]
  - METABOLIC ACIDOSIS [None]
  - PYREXIA [None]
  - VOMITING [None]
